FAERS Safety Report 25641869 (Version 2)
Quarter: 2025Q3

REPORT INFORMATION
  Report Type: Report from Study
  Country: CA (occurrence: CA)
  Receive Date: 20250804
  Receipt Date: 20250901
  Transmission Date: 20251021
  Serious: Yes (Hospitalization, Other)
  Sender: ABBVIE
  Company Number: CA-ABBVIE-6395297

PATIENT
  Age: 44 Year
  Sex: Male

DRUGS (3)
  1. SKYRIZI [Suspect]
     Active Substance: RISANKIZUMAB-RZAA
     Indication: Crohn^s disease
     Route: 058
     Dates: start: 20250617
  2. CEFIDEROCOL [Concomitant]
     Active Substance: CEFIDEROCOL
     Indication: Product used for unknown indication
  3. TAZOBACTAM [Concomitant]
     Active Substance: TAZOBACTAM
     Indication: Product used for unknown indication

REACTIONS (9)
  - Abscess [Unknown]
  - Ileostomy [Unknown]
  - Skin operation [Unknown]
  - Muscle operation [Unknown]
  - Upper limb fracture [Unknown]
  - Fall [Unknown]
  - Crohn^s disease [Unknown]
  - Muscle spasms [Unknown]
  - Renal disorder [Unknown]

NARRATIVE: CASE EVENT DATE: 20250101
